FAERS Safety Report 14236008 (Version 1)
Quarter: 2017Q4

REPORT INFORMATION
  Report Type: Spontaneous
  Country: US (occurrence: US)
  Receive Date: 20171129
  Receipt Date: 20171129
  Transmission Date: 20180321
  Serious: No
  Sender: FDA-Public Use
  Company Number: US-ASTRAZENECA-2017SF04862

PATIENT
  Sex: Female

DRUGS (2)
  1. RHINOCORT ALLERGY [Suspect]
     Active Substance: BUDESONIDE
     Dosage: 3 SPRAYS IN EACH NOSTRIL TWICE PER DAY
     Route: 045
     Dates: start: 2016
  2. RHINOCORT ALLERGY [Suspect]
     Active Substance: BUDESONIDE
     Dosage: 2 SPRAYS IN EACH NOSTRIL TWICE PER DAY
     Route: 045

REACTIONS (6)
  - Product quality issue [Unknown]
  - Productive cough [Not Recovered/Not Resolved]
  - Product use issue [Unknown]
  - Drug ineffective [Unknown]
  - Upper-airway cough syndrome [Not Recovered/Not Resolved]
  - Product packaging issue [Unknown]
